FAERS Safety Report 8890590 (Version 6)
Quarter: 2013Q1

REPORT INFORMATION
  Report Type: Report from Study
  Country: US (occurrence: US)
  Receive Date: 20121106
  Receipt Date: 20130214
  Transmission Date: 20140127
  Serious: Yes (Life-Threatening, Hospitalization)
  Sender: FDA-Public Use
  Company Number: US-009507513-1211USA000155

PATIENT
  Age: 6 Year
  Sex: Female
  Weight: 20.1 kg

DRUGS (8)
  1. VORINOSTAT [Suspect]
     Indication: BRAIN STEM GLIOMA
     Dosage: 230 MG/M2/DOSE ON DAYS 1-5 WEEKLY (CYCLE 1)
     Route: 048
     Dates: start: 20111011
  2. VORINOSTAT [Suspect]
     Dosage: 230 MG/M2/DOSE QD (CYCLE 2)
     Route: 048
     Dates: start: 20121126
  3. VORINOSTAT [Suspect]
     Dosage: 230 MG/M2/DOSE QD (CYCLE 3)
     Route: 048
     Dates: start: 20121228, end: 20130129
  4. DEXAMETHASONE [Suspect]
     Dosage: 10 MG, UNK
     Route: 042
  5. DEXAMETHASONE [Suspect]
     Dosage: 4 MG, QID
     Route: 048
  6. BACTRIM [Suspect]
  7. LACTULOSE [Concomitant]
  8. ONDANSETRON [Concomitant]

REACTIONS (6)
  - Haemorrhage intracranial [Recovering/Resolving]
  - Glucose tolerance impaired [Recovering/Resolving]
  - Hyperglycaemia [Recovering/Resolving]
  - Fatigue [Recovered/Resolved]
  - Pyrexia [Recovered/Resolved]
  - White blood cell count decreased [Not Recovered/Not Resolved]
